FAERS Safety Report 23181140 (Version 1)
Quarter: 2023Q4

REPORT INFORMATION
  Report Type: Spontaneous
  Country: CN (occurrence: None)
  Receive Date: 20231114
  Receipt Date: 20231114
  Transmission Date: 20240110
  Serious: Yes (Hospitalization, Other)
  Sender: FDA-Public Use
  Company Number: CN-MLMSERVICE-20231030-4628869-1

PATIENT
  Age: 51 Year
  Sex: Female

DRUGS (7)
  1. CYTARABINE [Concomitant]
     Active Substance: CYTARABINE
     Indication: Acute myeloid leukaemia
     Dosage: 0.2 G DAY 1-5 ; CYCLICAL
     Dates: start: 20210822
  2. CEFOPERAZONE SODIUM\SULBACTAM SODIUM [Suspect]
     Active Substance: CEFOPERAZONE SODIUM\SULBACTAM SODIUM
     Indication: Prophylaxis
     Dosage: ()
     Dates: start: 2021, end: 2021
  3. THROMBOPOIETIN [Concomitant]
     Active Substance: THROMBOPOIETIN
     Indication: Platelet count decreased
     Dosage: ()
     Dates: start: 20210822
  4. IDARUBICIN [Concomitant]
     Active Substance: IDARUBICIN
     Indication: Acute myeloid leukaemia
     Dosage: DAY 1-3 ; CYCLICAL
     Dates: start: 20210822
  5. TEICOPLANIN [Suspect]
     Active Substance: TEICOPLANIN
     Indication: Prophylaxis
     Dosage: ()
     Dates: start: 2021, end: 2021
  6. MEROPENEM [Suspect]
     Active Substance: MEROPENEM
     Indication: Prophylaxis
     Dosage: ()
     Dates: start: 2021, end: 2021
  7. VORICONAZOLE [Concomitant]
     Active Substance: VORICONAZOLE
     Indication: Prophylaxis

REACTIONS (1)
  - Refractoriness to platelet transfusion [Recovered/Resolved]

NARRATIVE: CASE EVENT DATE: 20210101
